FAERS Safety Report 25979026 (Version 2)
Quarter: 2025Q4

REPORT INFORMATION
  Report Type: Spontaneous
  Country: BR (occurrence: BR)
  Receive Date: 20251030
  Receipt Date: 20251118
  Transmission Date: 20260117
  Serious: Yes (Hospitalization, Other)
  Sender: SANDOZ
  Company Number: BR-002147023-NVSC2025BR156925

PATIENT
  Sex: Male
  Weight: 86 kg

DRUGS (18)
  1. CIPROFLOXACIN [Suspect]
     Active Substance: CIPROFLOXACIN
     Indication: Product used for unknown indication
     Dosage: 500 MG (1 TABLET EVERY 12 HOURS FOR 5  DAYS)
     Route: 048
     Dates: start: 20251002, end: 20251007
  2. PLUVICTO [Suspect]
     Active Substance: LUTETIUM LU-177 VIPIVOTIDE TETRAXETAN
     Indication: Hormone-refractory prostate cancer
     Dosage: 1 DOSAGE FORM (INJECTABLE SOLUTION (1  UNIT), 1000 MBQ/ML, ONE APPLICATION  EVERY 6 WEEKS, FOR 6 CYC
     Route: 042
     Dates: start: 20251001
  3. PLUVICTO [Suspect]
     Active Substance: LUTETIUM LU-177 VIPIVOTIDE TETRAXETAN
     Indication: Prostate cancer metastatic
  4. ROSUVASTATIN CALCIUM [Suspect]
     Active Substance: ROSUVASTATIN CALCIUM
     Indication: Hypertension
     Dosage: 1 DOSAGE FORM, QHS 1 DOSAGE FORM (1 TABLET, NIGHT)
     Route: 065
  5. ROSUVASTATIN CALCIUM [Suspect]
     Active Substance: ROSUVASTATIN CALCIUM
     Dosage: 10 MG (HAVE 60 COATED TABLETS)
     Route: 048
  6. ROSUVASTATIN CALCIUM [Suspect]
     Active Substance: ROSUVASTATIN CALCIUM
     Indication: Product used for unknown indication
     Dosage: 10 MG (HAVE: 60 COATED TABLETS )
     Route: 065
  7. APIXABAN [Concomitant]
     Active Substance: APIXABAN
     Indication: Product used for unknown indication
     Dosage: 2.5 MG, Q12H 2.5 MG (1 TABLET EVERY 12 HOURS)
     Route: 065
  8. DUTASTERIDE\TAMSULOSIN [Concomitant]
     Active Substance: DUTASTERIDE\TAMSULOSIN
     Indication: Hypertension
     Dosage: UNK, QHS (0.5/0.4, NIGHT 1 TABLET)
     Route: 065
  9. DEXAMETHASONE [Concomitant]
     Active Substance: DEXAMETHASONE
     Indication: Product used for unknown indication
     Dosage: 4 MG (1 TABLET FOR 5 DAYS)
     Route: 065
  10. Inilok [Concomitant]
     Indication: Product used for unknown indication
     Dosage: 40 MG (ON AN EMPTY STOMACH) (EXTENDED RELEASE COATED TABLET)
     Route: 048
  11. MAGNE B6 [Concomitant]
     Active Substance: MAGNESIUM\PYRIDOXINE
     Indication: Product used for unknown indication
     Dosage: UNK
     Route: 065
     Dates: end: 20251101
  12. NEBIVOLOL [Concomitant]
     Active Substance: NEBIVOLOL
     Indication: Product used for unknown indication
     Dosage: 1 DOSAGE FORM, QHS
     Route: 065
  13. NITROFURANTOIN [Concomitant]
     Active Substance: NITROFURANTOIN
     Dosage: 100 MG, QD 100 MG (TABLET PER DAY), RESUMED
     Route: 065
     Dates: start: 20251014
  14. NITROFURANTOIN [Concomitant]
     Active Substance: NITROFURANTOIN
     Indication: Prophylaxis
     Route: 065
  15. AMLODIPINE [Concomitant]
     Active Substance: AMLODIPINE BESYLATE
     Indication: Hypertension
     Dosage: 5 MG, QHS 5 MG (NIGHT 1 TABLET)
     Route: 065
  16. Pidomag flac [Concomitant]
     Indication: Product used for unknown indication
     Dosage: HAVE 12 VIALS OF 10ML
     Route: 065
     Dates: start: 20251101
  17. SLOW K [Concomitant]
     Active Substance: POTASSIUM CHLORIDE
     Indication: Product used for unknown indication
     Dosage: UNK
     Route: 065
  18. TELMISARTAN [Concomitant]
     Active Substance: TELMISARTAN
     Indication: Hypertension
     Dosage: 1 DOSAGE FORM (40 MG) MORNING 1 TABLET
     Route: 065

REACTIONS (33)
  - Infection [Unknown]
  - Hydronephrosis [Unknown]
  - Urinary tract infection [Recovered/Resolved]
  - Decreased appetite [Unknown]
  - Urine output decreased [Recovered/Resolved]
  - Leukocytosis [Unknown]
  - C-reactive protein increased [Unknown]
  - Haemoglobin abnormal [Unknown]
  - Haematocrit abnormal [Unknown]
  - White blood cell count abnormal [Unknown]
  - Blood urea abnormal [Unknown]
  - Blood creatinine abnormal [Unknown]
  - Prothrombin time abnormal [Unknown]
  - Pain [Unknown]
  - Dyschezia [Unknown]
  - Night sweats [Unknown]
  - Dysgeusia [Unknown]
  - Red blood cell count decreased [Not Recovered/Not Resolved]
  - Haemoglobin decreased [Not Recovered/Not Resolved]
  - Blood alkaline phosphatase increased [Recovering/Resolving]
  - Gamma-glutamyltransferase increased [Recovering/Resolving]
  - Prostatic specific antigen decreased [Recovering/Resolving]
  - Blood pressure increased [Not Recovered/Not Resolved]
  - Prostatic specific antigen increased [Recovering/Resolving]
  - Blood magnesium decreased [Recovered/Resolved]
  - Red cell distribution width increased [Not Recovered/Not Resolved]
  - White blood cell count decreased [Unknown]
  - Haematocrit decreased [Not Recovered/Not Resolved]
  - Neutrophil count decreased [Not Recovered/Not Resolved]
  - Lymphocyte count decreased [Unknown]
  - Fatigue [Unknown]
  - Aspartate aminotransferase increased [Recovered/Resolved]
  - Alanine aminotransferase increased [Recovered/Resolved]
